FAERS Safety Report 4661502-6 (Version None)
Quarter: 2005Q2

REPORT INFORMATION
  Report Type: 
  Country: None (occurrence: None)
  Receive Date: 20050512
  Receipt Date: 20050512
  Transmission Date: 20051028
  Serious: Yes (Death)
  Sender: FDA-Public Use
  Company Number: None

PATIENT
  Age: 64 Year
  Sex: Male
  Weight: 100 kg

DRUGS (2)
  1. AMIODARONE IV [Suspect]
     Indication: ATRIAL FIBRILLATION
     Dosage: ADJUSTED   INTRAVENOU
     Route: 042
     Dates: start: 20050316, end: 20050325
  2. AMIODARONE TABLETS [Suspect]
     Indication: ATRIAL FIBRILLATION
     Dosage: ADJUSTED ORAL
     Route: 048
     Dates: start: 20050316, end: 20050325

REACTIONS (5)
  - ACUTE RESPIRATORY DISTRESS SYNDROME [None]
  - DILATATION VENTRICULAR [None]
  - HYPOVOLAEMIA [None]
  - OEDEMA [None]
  - PULMONARY TOXICITY [None]
